FAERS Safety Report 20508353 (Version 2)
Quarter: 2022Q2

REPORT INFORMATION
  Report Type: Spontaneous
  Country: US (occurrence: None)
  Receive Date: 20220223
  Receipt Date: 20220404
  Transmission Date: 20220721
  Serious: Yes (Hospitalization, Other)
  Sender: FDA-Public Use
  Company Number: 2022A074232

PATIENT
  Age: 785 Month
  Sex: Male

DRUGS (1)
  1. BUDESONIDE\FORMOTEROL\GLYCOPYRRONIUM [Suspect]
     Active Substance: BUDESONIDE\FORMOTEROL\GLYCOPYRRONIUM
     Indication: Chronic obstructive pulmonary disease
     Dosage: 160/9/4.8 TWO PUFFS TWO TIMES A DAY
     Route: 055
     Dates: start: 2021

REACTIONS (7)
  - Pulmonary mass [Recovered/Resolved]
  - Haemorrhage [Recovered/Resolved]
  - Vocal cord paralysis [Not Recovered/Not Resolved]
  - Dyspnoea [Recovered/Resolved]
  - Dysphonia [Not Recovered/Not Resolved]
  - Wrong technique in device usage process [Not Recovered/Not Resolved]
  - Device malfunction [Unknown]

NARRATIVE: CASE EVENT DATE: 20210701
